FAERS Safety Report 10438279 (Version 4)
Quarter: 2015Q1

REPORT INFORMATION
  Report Type: Spontaneous
  Country: US (occurrence: US)
  Receive Date: 20140908
  Receipt Date: 20150206
  Transmission Date: 20150720
  Serious: Yes (Hospitalization, Other)
  Sender: FDA-Public Use
  Company Number: US-GLAXOSMITHKLINE-A1087251A

PATIENT
  Age: 83 Year
  Sex: Female

DRUGS (11)
  1. HYDROCHLOROTHIAZIDE. [Concomitant]
     Active Substance: HYDROCHLOROTHIAZIDE
  2. SPIRIVA [Suspect]
     Active Substance: TIOTROPIUM BROMIDE MONOHYDRATE
     Indication: RESPIRATORY FAILURE
  3. PROAIR HFA [Suspect]
     Active Substance: ALBUTEROL SULFATE
     Indication: PRODUCT USED FOR UNKNOWN INDICATION
  4. LOSARTAN POTASSIUM. [Concomitant]
     Active Substance: LOSARTAN POTASSIUM
  5. PREDNISONE. [Suspect]
     Active Substance: PREDNISONE
     Indication: CHRONIC OBSTRUCTIVE PULMONARY DISEASE
     Dosage: 5 MG, QD
     Route: 065
     Dates: start: 201303
  6. TRIAMCINOLONE [Concomitant]
     Active Substance: TRIAMCINOLONE
  7. ADVAIR HFA [Suspect]
     Active Substance: FLUTICASONE PROPIONATE\SALMETEROL XINAFOATE
     Indication: RESPIRATORY FAILURE
     Dosage: UNK
  8. SPIRIVA [Suspect]
     Active Substance: TIOTROPIUM BROMIDE MONOHYDRATE
     Indication: CHRONIC OBSTRUCTIVE PULMONARY DISEASE
     Dosage: 2 PUFFS ONCE DAILY
     Route: 065
     Dates: start: 201310
  9. ASPIRIN. [Concomitant]
     Active Substance: ASPIRIN
  10. DIGOXIN. [Concomitant]
     Active Substance: DIGOXIN
  11. ADVAIR HFA [Suspect]
     Active Substance: FLUTICASONE PROPIONATE\SALMETEROL XINAFOATE
     Indication: CHRONIC OBSTRUCTIVE PULMONARY DISEASE
     Dosage: 250/50 MCG ONE PUFF TWICE DAILY
     Route: 055
     Dates: start: 201310

REACTIONS (11)
  - Eye disorder [Unknown]
  - Cardiac disorder [Unknown]
  - Chest pain [Unknown]
  - Drug ineffective [Unknown]
  - Panic reaction [Unknown]
  - Bladder cancer [Not Recovered/Not Resolved]
  - Ocular hyperaemia [Unknown]
  - Weight increased [Unknown]
  - Haematuria [Unknown]
  - Bladder neoplasm surgery [Unknown]
  - Bladder neoplasm [Unknown]

NARRATIVE: CASE EVENT DATE: 201310
